FAERS Safety Report 4630547-4 (Version None)
Quarter: 2005Q2

REPORT INFORMATION
  Report Type: 
  Country: None (occurrence: None)
  Receive Date: 20050408
  Receipt Date: 20050402
  Transmission Date: 20051028
  Serious: Yes (Other)
  Sender: FDA-Public Use
  Company Number: GB-GLAXOSMITHKLINE-B0376592A

PATIENT
  Age: 48 Year
  Sex: Male
  Weight: 80 kg

DRUGS (2)
  1. ZYBAN [Suspect]
     Indication: SMOKING CESSATION THERAPY
     Dosage: 150MG PER DAY
     Route: 048
     Dates: start: 20050311, end: 20050318
  2. ESOMEPRAZOLE [Concomitant]
     Indication: OESOPHAGITIS
     Dosage: 40MG PER DAY
     Route: 048
     Dates: start: 20050111

REACTIONS (4)
  - BLOOD PRESSURE INCREASED [None]
  - CARDIOVASCULAR DISORDER [None]
  - DRUG WITHDRAWAL SYNDROME [None]
  - HEADACHE [None]
